FAERS Safety Report 5620768-6 (Version None)
Quarter: 2008Q1

REPORT INFORMATION
  Report Type: 
  Country: None (occurrence: None)
  Receive Date: 20080208
  Receipt Date: 20080130
  Transmission Date: 20080703
  Serious: Yes (Hospitalization)
  Sender: FDA-Public Use
  Company Number: DE-ABBOTT-08P-062-0436211-00

PATIENT
  Age: 64 Year
  Sex: Female

DRUGS (8)
  1. HUMIRA [Suspect]
     Indication: DRUG USE FOR UNKNOWN INDICATION
     Dates: start: 20050701, end: 20050701
  2. HUMIRA [Suspect]
     Dates: start: 20040101, end: 20041101
  3. METHOTREXATE [Suspect]
     Indication: DRUG USE FOR UNKNOWN INDICATION
  4. METHOTREXATE [Suspect]
  5. INFLIXIMAB [Suspect]
     Indication: DRUG USE FOR UNKNOWN INDICATION
  6. ETANERCEPT [Suspect]
     Indication: DRUG USE FOR UNKNOWN INDICATION
  7. KINERET [Suspect]
     Indication: DRUG USE FOR UNKNOWN INDICATION
  8. LEFLUNOMIDE [Suspect]
     Indication: DRUG USE FOR UNKNOWN INDICATION

REACTIONS (2)
  - INTESTINAL ISCHAEMIA [None]
  - INTESTINAL STENOSIS [None]
